FAERS Safety Report 19783929 (Version 1)
Quarter: 2021Q3

REPORT INFORMATION
  Report Type: Spontaneous
  Country: US (occurrence: US)
  Receive Date: 20210903
  Receipt Date: 20210903
  Transmission Date: 20211014
  Serious: No
  Sender: FDA-Public Use
  Company Number: US-BECTON DICKINSON-US-BD-20-002759

PATIENT
  Sex: Female
  Weight: 61 kg

DRUGS (6)
  1. REMODULIN [Suspect]
     Active Substance: TREPROSTINIL
     Dosage: 0.046 ?G/KG, CONTINUOUS
     Route: 042
     Dates: start: 2020
  2. CHLORAPREP [Suspect]
     Active Substance: CHLORHEXIDINE GLUCONATE\ISOPROPYL ALCOHOL
     Dosage: UNK
     Route: 061
     Dates: start: 2020, end: 2020
  3. REMODULIN [Suspect]
     Active Substance: TREPROSTINIL
     Dosage: UNK, CONTINUOUS
     Route: 042
     Dates: start: 20200716
  4. OPSUMIT [Concomitant]
     Active Substance: MACITENTAN
  5. TADALAFIL. [Concomitant]
     Active Substance: TADALAFIL
  6. ESBRIET [Concomitant]
     Active Substance: PIRFENIDONE

REACTIONS (1)
  - Dermatitis contact [Unknown]

NARRATIVE: CASE EVENT DATE: 2020
